FAERS Safety Report 9859634 (Version 2)
Quarter: 2014Q1

REPORT INFORMATION
  Report Type: Spontaneous
  Country: CH (occurrence: CH)
  Receive Date: 20140131
  Receipt Date: 20140131
  Transmission Date: 20141002
  Serious: Yes (Hospitalization, Other)
  Sender: FDA-Public Use
  Company Number: CH-PFIZER INC-2013149220

PATIENT
  Sex: Female
  Weight: 1.5 kg

DRUGS (6)
  1. EFEXOR ER [Suspect]
     Dosage: 75 MG, 1X/DAY
     Route: 064
  2. METHADONE [Suspect]
     Indication: DRUG DEPENDENCE
     Dosage: 50 MG, 1X/DAY
     Route: 064
  3. IMOVANE [Suspect]
     Dosage: 7.5 MG, 1X/DAY
     Route: 064
  4. TRITTICO [Suspect]
     Dosage: 200 MG, 1X/DAY
     Route: 064
  5. ZYPREXA [Suspect]
     Dosage: 5 MG, 1X/DAY
     Route: 064
  6. HEROIN [Suspect]
     Route: 064

REACTIONS (4)
  - Maternal exposure during pregnancy [Unknown]
  - Foetal growth restriction [Unknown]
  - Premature baby [Unknown]
  - Drug withdrawal syndrome neonatal [Unknown]
